FAERS Safety Report 23515485 (Version 2)
Quarter: 2024Q1

REPORT INFORMATION
  Report Type: Spontaneous
  Country: EG (occurrence: EG)
  Receive Date: 20240213
  Receipt Date: 20240222
  Transmission Date: 20240410
  Serious: Yes (Hospitalization, Other)
  Sender: FDA-Public Use
  Company Number: EG-NOVOPROD-1170684

PATIENT
  Age: 794 Month
  Sex: Female
  Weight: 80 kg

DRUGS (2)
  1. INSULIN HUMAN [Suspect]
     Active Substance: INSULIN HUMAN
     Indication: Type 2 diabetes mellitus
     Dosage: 60 IU, QD (40IU AM +20 IU PM)(STARTED 10-12 YEARS OR MORE YEARS AGO)
     Route: 058
  2. BISOPROLOL FUMARATE [Concomitant]
     Active Substance: BISOPROLOL FUMARATE
     Indication: Hypertension
     Dosage: 10 MG, QD( ONCE AT NIGHT)
     Route: 048

REACTIONS (2)
  - Coronary artery occlusion [Unknown]
  - Cholelithiasis [Recovered/Resolved]
